FAERS Safety Report 25477053 (Version 2)
Quarter: 2025Q3

REPORT INFORMATION
  Report Type: Spontaneous
  Country: TW (occurrence: TW)
  Receive Date: 20250625
  Receipt Date: 20250729
  Transmission Date: 20251020
  Serious: Yes (Other)
  Sender: SANOFI AVENTIS
  Company Number: TW-SA-2025SA176907

PATIENT
  Age: 49 Year
  Sex: Male
  Weight: 73.9 kg

DRUGS (8)
  1. FASTURTEC [Suspect]
     Active Substance: RASBURICASE
     Indication: Hyperuricaemia
     Route: 041
     Dates: start: 20250204, end: 20250221
  2. FASTURTEC [Suspect]
     Active Substance: RASBURICASE
     Route: 041
     Dates: start: 20250306, end: 20250306
  3. Euricon [Concomitant]
     Indication: Hyperuricaemia
     Dosage: 500 MG, BID
     Route: 048
     Dates: start: 20250204, end: 20250313
  4. FEBUXOSTAT [Concomitant]
     Active Substance: FEBUXOSTAT
     Indication: Hyperuricaemia
     Dosage: 160 MG, QD
     Route: 048
     Dates: start: 20250304, end: 20250312
  5. FILGRASTIM [Concomitant]
     Active Substance: FILGRASTIM
     Indication: Neutropenia
     Dosage: 300 UG, QD
     Route: 058
     Dates: start: 20250306, end: 20250306
  6. DASATINIB [Concomitant]
     Active Substance: DASATINIB
     Indication: Chronic myeloid leukaemia
     Dates: start: 202502
  7. DASATINIB [Concomitant]
     Active Substance: DASATINIB
     Indication: Acute myeloid leukaemia
  8. DIPHENHYDRAMINE [Concomitant]
     Active Substance: DIPHENHYDRAMINE
     Indication: Hypersensitivity
     Route: 042

REACTIONS (11)
  - Anaphylactic reaction [Recovered/Resolved]
  - Hypoxia [Recovered/Resolved]
  - Hypotension [Recovered/Resolved]
  - Drug hypersensitivity [Recovered/Resolved]
  - Eye pain [Recovered/Resolved]
  - Headache [Recovered/Resolved]
  - Dyspnoea [Recovered/Resolved]
  - Hyperuricaemia [Unknown]
  - Pruritus [Recovered/Resolved]
  - Discomfort [Recovered/Resolved]
  - Heart rate increased [Recovered/Resolved]

NARRATIVE: CASE EVENT DATE: 20250204
